FAERS Safety Report 5096311-X (Version None)
Quarter: 2006Q3

REPORT INFORMATION
  Report Type: 
  Country: None (occurrence: None)
  Receive Date: 20060905
  Receipt Date: 20060711
  Transmission Date: 20061208
  Serious: No
  Sender: FDA-Public Use
  Company Number: PHFR2006GB02225

PATIENT
  Age: 80 Year
  Sex: Male

DRUGS (5)
  1. ZOLEDRONIC ACID [Suspect]
     Indication: PROSTATE CANCER
     Dosage: 4MG/DAY
     Route: 042
  2. CASODEX [Concomitant]
     Route: 065
  3. PARACETAMOL [Concomitant]
     Route: 065
  4. DICLOFENAC [Concomitant]
     Route: 065
  5. BISPHOSPHONATES [Concomitant]
     Indication: PAIN
     Route: 065

REACTIONS (1)
  - PAIN IN JAW [None]
